FAERS Safety Report 25423093 (Version 1)
Quarter: 2025Q2

REPORT INFORMATION
  Report Type: Spontaneous
  Country: US (occurrence: None)
  Receive Date: 20250610
  Receipt Date: 20250610
  Transmission Date: 20250717
  Serious: Yes (Hospitalization)
  Sender: FDA-CTU
  Company Number: None

PATIENT
  Age: 77 Year
  Sex: Male
  Weight: 83 kg

DRUGS (1)
  1. EMPAGLIFLOZIN [Suspect]
     Active Substance: EMPAGLIFLOZIN
     Indication: Diabetes mellitus
     Route: 048
     Dates: end: 20241205

REACTIONS (14)
  - Acidosis [None]
  - Asthenia [None]
  - Fatigue [None]
  - Abdominal pain upper [None]
  - Vomiting [None]
  - Blood sodium decreased [None]
  - Blood urea increased [None]
  - Blood creatinine increased [None]
  - Blood glucose increased [None]
  - Haemoglobin decreased [None]
  - Haematocrit decreased [None]
  - White blood cell count abnormal [None]
  - Cystic fibrosis [None]
  - Blood pH increased [None]

NARRATIVE: CASE EVENT DATE: 20241204
